FAERS Safety Report 16935933 (Version 4)
Quarter: 2019Q4

REPORT INFORMATION
  Report Type: Report from Study
  Country: None (occurrence: AU)
  Receive Date: 20191018
  Receipt Date: 20191125
  Transmission Date: 20200122
  Serious: Yes (Other)
  Sender: FDA-Public Use
  Company Number: AU-ABBVIE-19K-008-2945161-00

PATIENT
  Age: 84 Year
  Sex: Male

DRUGS (2)
  1. DUODOPA [Suspect]
     Active Substance: CARBIDOPA\LEVODOPA
     Indication: PARKINSON^S DISEASE
     Dosage: 100 ML GEL CASSETTE 16 HRS- - 4 ML/HR  /DOSE INCREASE
     Route: 050
     Dates: start: 20170407, end: 20191029
  2. DUODOPA [Suspect]
     Active Substance: CARBIDOPA\LEVODOPA
     Dosage: 16 HOURS- 5 ML/HR /100ML GEL CASSETTE
     Route: 050
     Dates: start: 20191109

REACTIONS (8)
  - Embedded device [Not Recovered/Not Resolved]
  - Device occlusion [Unknown]
  - Abdominal pain [Unknown]
  - Stoma site discharge [Unknown]
  - Device dislocation [Unknown]
  - Device expulsion [Unknown]
  - Device difficult to use [Unknown]
  - Incorrect route of product administration [Not Recovered/Not Resolved]

NARRATIVE: CASE EVENT DATE: 2019
